FAERS Safety Report 25361132 (Version 1)
Quarter: 2025Q2

REPORT INFORMATION
  Report Type: Spontaneous
  Country: QA (occurrence: QA)
  Receive Date: 20250527
  Receipt Date: 20250527
  Transmission Date: 20250717
  Serious: Yes (Life-Threatening)
  Sender: BAUSCH AND LOMB
  Company Number: QA-BAUSCH-BL-2025-005113

PATIENT
  Age: 30 Year
  Sex: Female

DRUGS (4)
  1. NIFEDIPINE [Suspect]
     Active Substance: NIFEDIPINE
     Indication: Blood pressure increased
     Route: 048
  2. MAGNESIUM SULFATE [Suspect]
     Active Substance: MAGNESIUM SULFATE
     Indication: Pre-eclampsia
     Route: 030
  3. MAGNESIUM SULFATE [Suspect]
     Active Substance: MAGNESIUM SULFATE
     Route: 042
  4. LABETALOL [Suspect]
     Active Substance: LABETALOL
     Indication: Blood pressure increased
     Route: 042

REACTIONS (2)
  - Hypocalcaemia [Unknown]
  - Maternal exposure during pregnancy [Unknown]
